FAERS Safety Report 15618783 (Version 1)
Quarter: 2018Q4

REPORT INFORMATION
  Report Type: Spontaneous
  Country: US (occurrence: US)
  Receive Date: 20181114
  Receipt Date: 20181114
  Transmission Date: 20190205
  Serious: Yes (Life-Threatening, Disabling, Other)
  Sender: FDA-Public Use
  Company Number: None

PATIENT
  Age: 42 Year
  Sex: Male
  Weight: 103.5 kg

DRUGS (2)
  1. CLONAZEPAM. [Concomitant]
     Active Substance: CLONAZEPAM
  2. CREST PRO-HEALTH ADVANCED EXTRA GUM PROTECTION [Suspect]
     Active Substance: STANNOUS FLUORIDE
     Indication: DENTAL DISORDER PROPHYLAXIS
     Dosage: ?          QUANTITY:3.5 OUNCE(S);?
     Route: 048
     Dates: start: 20181113, end: 20181114

REACTIONS (9)
  - Dry mouth [None]
  - Headache [None]
  - Skin lesion [None]
  - Agitation [None]
  - Heart rate increased [None]
  - Nausea [None]
  - Thirst [None]
  - Mydriasis [None]
  - Aphthous ulcer [None]

NARRATIVE: CASE EVENT DATE: 20181114
